FAERS Safety Report 8166717-0 (Version None)
Quarter: 2012Q1

REPORT INFORMATION
  Report Type: 
  Country: None (occurrence: None)
  Receive Date: 20120103
  Receipt Date: 20111021
  Transmission Date: 20120608
  Serious: No
  Sender: FDA-Public Use
  Company Number: AE-2011-002535

PATIENT
  Age: 54 Year
  Sex: Male
  Weight: 100.2449 kg

DRUGS (8)
  1. DAYQUIL (BENADRYL COLD AND FLU TABLETS) [Concomitant]
  2. RIBAVIRIN [Concomitant]
  3. LISINOPRIL [Concomitant]
  4. PEGASYS [Concomitant]
  5. VITAMIN B (VITAMIN B) [Concomitant]
  6. VITAMIN E [Concomitant]
  7. CENTRUM MULTIVITAMIN (CENTRUM) [Concomitant]
  8. INCIVEK [Suspect]
     Dosage: 2250 (750 MG,1 IN 8 HR),ORAL
     Route: 048
     Dates: start: 20111010

REACTIONS (6)
  - NAUSEA [None]
  - FATIGUE [None]
  - INFLUENZA LIKE ILLNESS [None]
  - PAIN [None]
  - DECREASED APPETITE [None]
  - HAEMORRHOIDS [None]
